FAERS Safety Report 8138647-1 (Version None)
Quarter: 2012Q1

REPORT INFORMATION
  Report Type: 
  Country: None (occurrence: None)
  Receive Date: 20120215
  Receipt Date: 20120206
  Transmission Date: 20120608
  Serious: Yes (Hospitalization)
  Sender: FDA-Public Use
  Company Number: DE-UCBSA-044500

PATIENT
  Sex: Female

DRUGS (12)
  1. PREDNISOLONE [Concomitant]
     Dates: start: 20110822, end: 20110930
  2. METHOTREXATE SODIUM [Concomitant]
     Dates: start: 20100401, end: 20101206
  3. CERTOLIZUMAB PEGOL [Suspect]
     Indication: RHEUMATOID ARTHRITIS
     Dosage: UNKNOWN DOSAGE
     Route: 058
     Dates: end: 20110901
  4. PREDNISOLONE [Concomitant]
     Dates: start: 20101101, end: 20101201
  5. PREDNISOLONE [Concomitant]
     Dates: start: 20101025, end: 20101030
  6. PREDNISOLONE [Concomitant]
     Dates: start: 20101015, end: 20101024
  7. FOLIC ACID [Concomitant]
     Indication: RHEUMATOID ARTHRITIS
     Dates: start: 20100401
  8. METHOTREXATE SODIUM [Concomitant]
     Indication: RHEUMATOID ARTHRITIS
     Dates: start: 20101207
  9. PREDNISOLONE [Concomitant]
     Indication: RHEUMATOID ARTHRITIS
     Dates: start: 20100401, end: 20101014
  10. PREDNISOLONE [Concomitant]
     Dates: start: 20111001, end: 20111023
  11. PREDNISOLONE [Concomitant]
     Dates: start: 20101202, end: 20110720
  12. PREDNISOLONE [Concomitant]
     Dates: start: 20110721, end: 20110821

REACTIONS (1)
  - BREAST CANCER IN SITU [None]
